FAERS Safety Report 9422897 (Version 2)
Quarter: 2013Q3

REPORT INFORMATION
  Report Type: Report from Study
  Country: US (occurrence: US)
  Receive Date: 20130726
  Receipt Date: 20130807
  Transmission Date: 20140515
  Serious: Yes (Hospitalization)
  Sender: FDA-Public Use
  Company Number: US-ACTELION-A-US2013-84698

PATIENT
  Age: 63 Year
  Sex: Male

DRUGS (8)
  1. VELETRI [Suspect]
     Indication: PULMONARY ARTERIAL HYPERTENSION
     Dosage: 8 NG/KG, PER MIN
     Route: 042
     Dates: start: 20111229
  2. TRACLEER [Suspect]
     Indication: PULMONARY ARTERIAL HYPERTENSION
     Dosage: 62.5 MG, UNK
     Route: 048
  3. TRACLEER [Suspect]
     Dosage: 125 UNK, UNK
     Route: 048
  4. REVATIO [Concomitant]
  5. LASIX [Concomitant]
  6. POTASSIUM [Concomitant]
  7. SERTRALINE [Concomitant]
  8. LEVOTHYROXINE [Concomitant]

REACTIONS (2)
  - Device occlusion [Recovering/Resolving]
  - Thrombosis in device [Recovering/Resolving]
